FAERS Safety Report 8622169-5 (Version None)
Quarter: 2012Q3

REPORT INFORMATION
  Report Type: 
  Country: None (occurrence: None)
  Receive Date: 20120826
  Receipt Date: 20100715
  Transmission Date: 20120928
  Serious: Yes (Other)
  Sender: FDA-Public Use
  Company Number: PHEH2010US003937

PATIENT
  Sex: Male

DRUGS (5)
  1. HERCEPTIN [Concomitant]
  2. ZOMETA [Suspect]
     Indication: METASTASES TO BONE
     Route: 042
     Dates: start: 20090601
  3. LAPATINIB [Concomitant]
  4. XELODA [Concomitant]
  5. TAXOTERE [Concomitant]

REACTIONS (7)
  - CERUMEN IMPACTION [None]
  - HEADACHE [None]
  - METASTASES TO CENTRAL NERVOUS SYSTEM [None]
  - EAR PAIN [None]
  - SWELLING [None]
  - METASTASES TO MENINGES [None]
  - PAIN IN JAW [None]
